FAERS Safety Report 10039181 (Version 4)
Quarter: 2014Q1

REPORT INFORMATION
  Report Type: Not Available
  Country: US (occurrence: US)
  Receive Date: 20140326
  Receipt Date: 20140331
  Transmission Date: 20141002
  Serious: Yes (Death)
  Sender: FDA-Public Use
  Company Number: US-ONYX-2014-0195

PATIENT
  Age: 75 Year
  Sex: Female

DRUGS (12)
  1. KYPROLIS [Suspect]
     Indication: PLASMA CELL MYELOMA
     Route: 042
     Dates: start: 20140116
  2. IRON [Concomitant]
     Indication: HAEMOGLOBIN DECREASED
     Route: 042
     Dates: start: 20140116, end: 20140116
  3. CALCIUM CARBONATE [Concomitant]
     Indication: SUPPLEMENTATION THERAPY
  4. SLOW MAG [Concomitant]
     Indication: SUPPLEMENTATION THERAPY
  5. ACYCLOVIR [Concomitant]
     Indication: PRODUCT USED FOR UNKNOWN INDICATION
  6. ADVAIR [Concomitant]
     Indication: ASTHMA
  7. AMLODIPINE [Concomitant]
     Indication: HYPERTENSION
  8. LOPERAMIDE [Concomitant]
     Indication: DIARRHOEA
  9. LYRICA [Concomitant]
     Indication: NEURALGIA
  10. ZOMETA [Concomitant]
     Indication: BONE METABOLISM DISORDER
  11. VICODIN [Concomitant]
     Indication: PAIN
  12. PROCRIT [Concomitant]
     Indication: PRODUCT USED FOR UNKNOWN INDICATION

REACTIONS (5)
  - Death [Fatal]
  - Hypersensitivity [Recovered/Resolved]
  - Dyspnoea [Recovering/Resolving]
  - Haemoglobin decreased [Not Recovered/Not Resolved]
  - General physical health deterioration [Unknown]
